FAERS Safety Report 6779223-2 (Version None)
Quarter: 2010Q2

REPORT INFORMATION
  Report Type: 
  Country: None (occurrence: None)
  Receive Date: 20100618
  Receipt Date: 20100505
  Transmission Date: 20101027
  Serious: No
  Sender: FDA-Public Use
  Company Number: A0851805A

PATIENT
  Age: 78 Year
  Sex: Male

DRUGS (13)
  1. PROMACTA [Suspect]
     Indication: DRUG USE FOR UNKNOWN INDICATION
     Dosage: 25MG PER DAY
     Route: 048
     Dates: start: 20100311
  2. AMBIEN [Suspect]
  3. DIOVAN [Concomitant]
  4. ATENOLOL [Concomitant]
  5. FUROSEMIDE [Concomitant]
  6. POTASSIUM [Concomitant]
  7. DECADRON [Concomitant]
  8. LISINOPRIL [Concomitant]
  9. M.V.I. [Concomitant]
  10. CO Q10 [Concomitant]
  11. VITAMIN E [Concomitant]
  12. UNKNOWN [Concomitant]
  13. TYLENOL W/ CODEINE NO. 3 [Concomitant]

REACTIONS (8)
  - ABDOMINAL PAIN UPPER [None]
  - CHEST PAIN [None]
  - DRUG INTERACTION [None]
  - GALLBLADDER DISORDER [None]
  - INSOMNIA [None]
  - MALAISE [None]
  - PLATELET COUNT DECREASED [None]
  - PLATELET COUNT INCREASED [None]
